FAERS Safety Report 25026571 (Version 1)
Quarter: 2025Q1

REPORT INFORMATION
  Report Type: Spontaneous
  Country: US (occurrence: US)
  Receive Date: 20250301
  Receipt Date: 20250301
  Transmission Date: 20250409
  Serious: No
  Sender: MERCK SHARP & DOHME LLC
  Company Number: US-PFIZER INC-202500032807

PATIENT
  Age: 79 Year
  Sex: Female

DRUGS (2)
  1. TUKYSA [Suspect]
     Active Substance: TUCATINIB
     Dosage: TWO 150MG TABLETS, TWICE DAILY
  2. ELIQUIS [Concomitant]
     Active Substance: APIXABAN
     Dates: start: 2019

REACTIONS (2)
  - Off label use [Unknown]
  - Product use issue [Unknown]
